FAERS Safety Report 13081678 (Version 2)
Quarter: 2018Q4

REPORT INFORMATION
  Report Type: Spontaneous
  Country: JP (occurrence: JP)
  Receive Date: 20170103
  Receipt Date: 20181105
  Transmission Date: 20190204
  Serious: Yes (Hospitalization)
  Sender: FDA-Public Use
  Company Number: JP-PFIZER INC-2016600465

PATIENT
  Age: 69 Year
  Sex: Male

DRUGS (4)
  1. LEVOFOLINATE [Suspect]
     Active Substance: LEVOLEUCOVORIN CALCIUM
     Indication: COLON CANCER
     Dosage: UNK UNK, 1X/DAY
     Route: 041
  2. 5-FU /00098801/ [Concomitant]
     Active Substance: FLUOROURACIL
     Dosage: UNK
     Route: 040
  3. ERBITUX [Concomitant]
     Active Substance: CETUXIMAB
     Dosage: UNK
  4. CAMPTO [Suspect]
     Active Substance: IRINOTECAN
     Indication: COLON CANCER
     Dosage: UNK UNK, 1X/DAY
     Route: 041

REACTIONS (1)
  - Varicella zoster virus infection [Recovering/Resolving]
